FAERS Safety Report 21202370 (Version 1)
Quarter: 2022Q3

REPORT INFORMATION
  Report Type: Spontaneous
  Country: GB (occurrence: GB)
  Receive Date: 20220811
  Receipt Date: 20220811
  Transmission Date: 20221027
  Serious: Yes (Other)
  Sender: FDA-Public Use
  Company Number: None

PATIENT
  Sex: Female
  Weight: 54 kg

DRUGS (9)
  1. MEMANTINE [Suspect]
     Active Substance: MEMANTINE
     Indication: Dementia
     Dosage: 5 MG, QD
     Route: 048
     Dates: start: 20220117, end: 20220118
  2. ATORVASTATIN CALCIUM [Concomitant]
     Active Substance: ATORVASTATIN CALCIUM
  3. .BETA.-ACETYLDIGOXIN [Concomitant]
     Active Substance: .BETA.-ACETYLDIGOXIN
  4. EPLERENONE [Concomitant]
     Active Substance: EPLERENONE
  5. FOLIC ACID [Concomitant]
     Active Substance: FOLIC ACID
  6. ISOSORBIDE MONONITRATE [Concomitant]
     Active Substance: ISOSORBIDE MONONITRATE
  7. PARACETAMOL O [Concomitant]
  8. XARELTO [Concomitant]
     Active Substance: RIVAROXABAN
  9. ZEROBASE [PARAFFIN] [Concomitant]

REACTIONS (1)
  - Hypertensive crisis [Recovering/Resolving]

NARRATIVE: CASE EVENT DATE: 20220117
